FAERS Safety Report 6541790-1 (Version None)
Quarter: 2010Q1

REPORT INFORMATION
  Report Type: 
  Country: None (occurrence: None)
  Receive Date: 20100119
  Receipt Date: 20100106
  Transmission Date: 20100710
  Serious: Yes (Hospitalization, Other)
  Sender: FDA-Public Use
  Company Number: PHHY2010BR00654

PATIENT
  Sex: Male
  Weight: 80 kg

DRUGS (11)
  1. FORASEQ [Suspect]
     Indication: ASTHMA
     Dosage: UNK
  2. BONIVA [Concomitant]
  3. CITALOPRAM [Concomitant]
  4. CRESTOR [Concomitant]
  5. AZTREONAM [Concomitant]
  6. SYMBICORT [Concomitant]
  7. BEROTEC [Concomitant]
  8. ATROVENT [Concomitant]
  9. FOSAMAX [Concomitant]
  10. DAFLON [Concomitant]
  11. CALCIUM CARBONATE [Concomitant]

REACTIONS (11)
  - BLOOD CHOLESTEROL INCREASED [None]
  - BLOOD PRESSURE INCREASED [None]
  - BONE MARROW TRANSPLANT [None]
  - DEPRESSION [None]
  - DYSPNOEA [None]
  - FALL [None]
  - FOOT FRACTURE [None]
  - LUNG INFECTION [None]
  - NASOPHARYNGITIS [None]
  - OEDEMA PERIPHERAL [None]
  - TREATMENT NONCOMPLIANCE [None]
